FAERS Safety Report 10622308 (Version 1)
Quarter: 2014Q4

REPORT INFORMATION
  Report Type: Spontaneous
  Country: US (occurrence: None)
  Receive Date: 20141202
  Receipt Date: 20141202
  Transmission Date: 20150529
  Serious: Yes (Other)
  Sender: FDA-Public Use
  Company Number: None

PATIENT
  Age: 56 Year
  Sex: Female

DRUGS (1)
  1. ENBREL [Suspect]
     Active Substance: ETANERCEPT
     Indication: RHEUMATOID ARTHRITIS
     Route: 058
     Dates: start: 20141001, end: 20141201

REACTIONS (6)
  - Injection site swelling [None]
  - Swelling [None]
  - Injection site pain [None]
  - Pain in extremity [None]
  - Pruritus [None]
  - Abdominal pain [None]

NARRATIVE: CASE EVENT DATE: 201411
